FAERS Safety Report 7117864-3 (Version None)
Quarter: 2010Q4

REPORT INFORMATION
  Report Type: 
  Country: None (occurrence: None)
  Receive Date: 20101118
  Receipt Date: 20101118
  Transmission Date: 20110411
  Serious: Yes (Other)
  Sender: FDA-Public Use
  Company Number: None

PATIENT
  Sex: Female
  Weight: 58.6 kg

DRUGS (1)
  1. ALENDRONATE [Suspect]
     Indication: OSTEOPOROSIS
     Dosage: 1 Q WEEK ORAL
     Route: 048
     Dates: start: 20080301, end: 20101001

REACTIONS (1)
  - BONE DENSITY DECREASED [None]
